FAERS Safety Report 4628879-9 (Version None)
Quarter: 2005Q2

REPORT INFORMATION
  Report Type: 
  Country: None (occurrence: None)
  Receive Date: 20050406
  Receipt Date: 20050329
  Transmission Date: 20051028
  Serious: Yes (Other)
  Sender: FDA-Public Use
  Company Number: 141585USA

PATIENT
  Age: 44 Year
  Sex: Female

DRUGS (1)
  1. COPAXONE [Suspect]
     Indication: MULTIPLE SCLEROSIS
     Dates: start: 20010127

REACTIONS (3)
  - HAEMORRHAGE SUBCUTANEOUS [None]
  - INJECTION SITE NECROSIS [None]
  - INJECTION SITE REACTION [None]
